FAERS Safety Report 16033395 (Version 1)
Quarter: 2019Q1

REPORT INFORMATION
  Report Type: Report from Study
  Country: FR (occurrence: FR)
  Receive Date: 20190305
  Receipt Date: 20190305
  Transmission Date: 20190418
  Serious: Yes (Other)
  Sender: FDA-Public Use
  Company Number: FR-HBP-2019FR018432

PATIENT
  Age: 28 Year
  Sex: Female
  Weight: 50 kg

DRUGS (2)
  1. VALCHLOR [Suspect]
     Active Substance: MECHLORETHAMINE
     Indication: MYCOSIS FUNGOIDES
     Dosage: UNK, 3/WEEK
     Dates: start: 20180801, end: 20180820
  2. TARGRETIN [Concomitant]
     Active Substance: BEXAROTENE
     Indication: MYCOSIS FUNGOIDES
     Dosage: 3 CAPSULES A DAY
     Route: 048
     Dates: start: 20171227, end: 20181125

REACTIONS (2)
  - Mycosis fungoides [Recovering/Resolving]
  - Malignant neoplasm progression [Recovering/Resolving]
